FAERS Safety Report 5757717-6 (Version None)
Quarter: 2008Q2

REPORT INFORMATION
  Report Type: 
  Country: None (occurrence: None)
  Receive Date: 20080529
  Receipt Date: 20080514
  Transmission Date: 20081010
  Serious: Yes (Other)
  Sender: FDA-Public Use
  Company Number: 2008001135

PATIENT
  Age: 72 Year
  Sex: Male

DRUGS (1)
  1. TARCEVA [Suspect]
     Indication: NON-SMALL CELL LUNG CANCER
     Dosage: (150 MG,QD),ORAL
     Route: 048
     Dates: start: 20080403

REACTIONS (11)
  - BONE PAIN [None]
  - CHEST DISCOMFORT [None]
  - CHEST PAIN [None]
  - CYANOSIS [None]
  - EMBOLISM VENOUS [None]
  - HICCUPS [None]
  - PAIN [None]
  - RASH [None]
  - RASH ERYTHEMATOUS [None]
  - RASH PUSTULAR [None]
  - VOMITING [None]
